FAERS Safety Report 10443212 (Version 3)
Quarter: 2014Q4

REPORT INFORMATION
  Report Type: Spontaneous
  Country: US (occurrence: US)
  Receive Date: 20140910
  Receipt Date: 20141003
  Transmission Date: 20150528
  Serious: Yes (Hospitalization, Other)
  Sender: FDA-Public Use
  Company Number: US-AMGEN-USASP2014056371

PATIENT
  Age: 67 Year
  Sex: Female

DRUGS (1)
  1. ENBREL [Suspect]
     Active Substance: ETANERCEPT
     Indication: PSORIASIS
     Dosage: 50 MG, QWK
     Route: 065
     Dates: start: 20060831

REACTIONS (14)
  - Cerebral autosomal dominant arteriopathy with subcortical infarcts and leukoencephalopathy [Not Recovered/Not Resolved]
  - Eating disorder [Unknown]
  - Back injury [Not Recovered/Not Resolved]
  - Paraesthesia [Not Recovered/Not Resolved]
  - Investigation [Recovered/Resolved]
  - Psoriasis [Not Recovered/Not Resolved]
  - Mobility decreased [Unknown]
  - Skin haemorrhage [Not Recovered/Not Resolved]
  - Dysphagia [Unknown]
  - Hypoaesthesia [Not Recovered/Not Resolved]
  - Loss of consciousness [Unknown]
  - Mastication disorder [Unknown]
  - Fall [Unknown]
  - Asthenia [Not Recovered/Not Resolved]

NARRATIVE: CASE EVENT DATE: 2014
